FAERS Safety Report 12619975 (Version 1)
Quarter: 2016Q3

REPORT INFORMATION
  Report Type: Spontaneous
  Country: US (occurrence: US)
  Receive Date: 20160803
  Receipt Date: 20160803
  Transmission Date: 20161109
  Serious: No
  Sender: FDA-Public Use
  Company Number: US-ENDO PHARMACEUTICALS INC.-2015-004431

PATIENT
  Age: 61 Year
  Sex: Male
  Weight: 84.9 kg

DRUGS (5)
  1. BABY ASPIRIN [Concomitant]
     Active Substance: ASPIRIN
     Indication: PROPHYLAXIS
  2. TESTOPEL [Suspect]
     Active Substance: TESTOSTERONE
     Indication: PRODUCT USED FOR UNKNOWN INDICATION
     Dosage: 10 PELLETS INSERTED
     Route: 065
     Dates: start: 20151118
  3. TESTOPEL [Suspect]
     Active Substance: TESTOSTERONE
     Dosage: 10 PELLETS INSERTED
     Route: 065
     Dates: start: 2010
  4. VOLTAREN [Concomitant]
     Active Substance: DICLOFENAC SODIUM
     Indication: INFLAMMATION
  5. TESTOPEL [Suspect]
     Active Substance: TESTOSTERONE
     Dosage: 10 PELLETS INSERTED
     Route: 065
     Dates: start: 201507

REACTIONS (6)
  - Haemorrhage [Recovered/Resolved]
  - Contusion [Recovered/Resolved]
  - Wrong technique in product usage process [Unknown]
  - Haemorrhage [Unknown]
  - Pain [Recovered/Resolved]
  - Sneezing [Unknown]

NARRATIVE: CASE EVENT DATE: 201507
